FAERS Safety Report 22257759 (Version 2)
Quarter: 2023Q2

REPORT INFORMATION
  Report Type: Spontaneous
  Country: US (occurrence: US)
  Receive Date: 20230427
  Receipt Date: 20230620
  Transmission Date: 20230721
  Serious: No
  Sender: FDA-Public Use
  Company Number: US-ABBVIE-4723675

PATIENT
  Age: 55 Year
  Sex: Female
  Weight: 102.05 kg

DRUGS (4)
  1. HUMIRA [Suspect]
     Active Substance: ADALIMUMAB
     Indication: Product used for unknown indication
     Route: 058
  2. RINVOQ [Suspect]
     Active Substance: UPADACITINIB
     Indication: Product used for unknown indication
     Dosage: FORM STRENGTH: 15 MILLIGRAMS
     Route: 048
  3. COSENTYX [Suspect]
     Active Substance: SECUKINUMAB
     Indication: Product used for unknown indication
     Route: 065
  4. DUPIXENT [Suspect]
     Active Substance: DUPILUMAB
     Indication: Dermatitis atopic
     Dosage: STRENGTH: 300M GL2ML
     Route: 058

REACTIONS (9)
  - Spondylitis [Unknown]
  - Osteoarthritis [Recovering/Resolving]
  - Gastrointestinal viral infection [Recovered/Resolved]
  - Pharyngeal swelling [Unknown]
  - Musculoskeletal discomfort [Recovering/Resolving]
  - Alopecia [Unknown]
  - Dermatitis atopic [Unknown]
  - Therapeutic response shortened [Unknown]
  - Throat tightness [Unknown]

NARRATIVE: CASE EVENT DATE: 20221201
